FAERS Safety Report 10423823 (Version 1)
Quarter: 2014Q3

REPORT INFORMATION
  Report Type: Report from Study
  Country: TW (occurrence: TW)
  Receive Date: 20140902
  Receipt Date: 20140902
  Transmission Date: 20150326
  Serious: Yes (Other)
  Sender: FDA-Public Use
  Company Number: TW-BAXTER-2014BAX052943

PATIENT

DRUGS (3)
  1. ASPIRIN. [Suspect]
     Active Substance: ASPIRIN
     Indication: INFLAMMATION
     Dosage: 3-5 MG/KG
     Route: 065
  2. ASPIRIN. [Suspect]
     Active Substance: ASPIRIN
     Route: 065
  3. KIOVIG [Suspect]
     Active Substance: HUMAN IMMUNOGLOBULIN G
     Indication: KAWASAKI^S DISEASE
     Dosage: 2G/KG
     Route: 042

REACTIONS (1)
  - Coronary artery dilatation [Unknown]
